FAERS Safety Report 19300399 (Version 1)
Quarter: 2021Q2

REPORT INFORMATION
  Report Type: Spontaneous
  Country: US (occurrence: US)
  Receive Date: 20210525
  Receipt Date: 20210525
  Transmission Date: 20210717
  Serious: Yes (Death, Hospitalization)
  Sender: FDA-Public Use
  Company Number: None

PATIENT
  Age: 62 Year
  Sex: Female
  Weight: 142.7 kg

DRUGS (4)
  1. DARCARBAZINE [Suspect]
     Active Substance: DACARBAZINE
     Dates: end: 20210512
  2. DOXORUBICIN HYDROCHLORIDE. [Suspect]
     Active Substance: DOXORUBICIN HYDROCHLORIDE
     Dates: end: 20210512
  3. SGN?35 (BRENTUXIMAB VEDOTIN) [Suspect]
     Active Substance: BRENTUXIMAB VEDOTIN
     Dates: end: 20210512
  4. VINBLASTINE SULFATE. [Suspect]
     Active Substance: VINBLASTINE SULFATE
     Dates: end: 20210512

REACTIONS (4)
  - Sepsis [None]
  - Jaundice [None]
  - Asthenia [None]
  - Blood glucose increased [None]

NARRATIVE: CASE EVENT DATE: 20210522
